FAERS Safety Report 8504877-X (Version None)
Quarter: 2012Q2

REPORT INFORMATION
  Report Type: 
  Country: None (occurrence: None)
  Receive Date: 20120405
  Receipt Date: 20100812
  Transmission Date: 20120825
  Serious: Yes (Other)
  Sender: FDA-Public Use
  Company Number: PHHY2010US54057

PATIENT
  Age: 65 Year
  Sex: Female

DRUGS (2)
  1. ANTIRHEUMATIC (INCL.ANTIPHLOGISTICS) (NO INGREDIENTSISUBSTANCES) [Concomitant]
  2. RECLAST [Suspect]
     Indication: OSTEOPOROSIS
     Dosage: 5 MG, ONCE PER YEAR, INTRAVENOUS
     Route: 042
     Dates: start: 20100101

REACTIONS (1)
  - OSTEONECROSIS OF JAW [None]
